FAERS Safety Report 9926665 (Version 1)
Quarter: 2014Q1

REPORT INFORMATION
  Report Type: Spontaneous
  Country: US (occurrence: US)
  Receive Date: 20140226
  Receipt Date: 20140226
  Transmission Date: 20141002
  Serious: No
  Sender: FDA-Public Use
  Company Number: US-AMGEN-USASP2013076494

PATIENT
  Age: 59 Year
  Sex: Female
  Weight: 131.5 kg

DRUGS (2)
  1. ENBREL [Suspect]
     Indication: PRODUCT USED FOR UNKNOWN INDICATION
     Dosage: 50 MG, WEEKLY
     Route: 058
     Dates: start: 201307
  2. METHOTREXATE [Concomitant]
     Dosage: UNK

REACTIONS (2)
  - Hepatic enzyme increased [Recovered/Resolved]
  - Infection [Recovered/Resolved]
